FAERS Safety Report 4497829-0 (Version None)
Quarter: 2004Q4

REPORT INFORMATION
  Report Type: 
  Country: None (occurrence: None)
  Receive Date: 20041110
  Receipt Date: 20041102
  Transmission Date: 20050328
  Serious: Yes (Other)
  Sender: FDA-Public Use
  Company Number: US-GLAXOSMITHKLINE-A0532259A

PATIENT
  Age: 30 Year
  Sex: Female

DRUGS (3)
  1. PAXIL [Suspect]
     Indication: GENERALISED ANXIETY DISORDER
     Dosage: 12.5MG ALTERNATE DAYS
     Route: 048
  2. PAXIL [Suspect]
     Dosage: 50MG PER DAY
     Route: 048
  3. XANAX [Concomitant]

REACTIONS (4)
  - HALLUCINATION, AUDITORY [None]
  - INSOMNIA [None]
  - NAUSEA [None]
  - PARAESTHESIA [None]
